FAERS Safety Report 4340997-1 (Version None)
Quarter: 2004Q2

REPORT INFORMATION
  Report Type: 
  Country: None (occurrence: None)
  Receive Date: 20040413
  Receipt Date: 20040402
  Transmission Date: 20050107
  Serious: Yes (Death)
  Sender: FDA-Public Use
  Company Number: US-JNJFOC-20031201803

PATIENT
  Age: 85 Year
  Sex: Female

DRUGS (2)
  1. ULTRAM [Suspect]
     Indication: PAIN IN EXTREMITY
     Dosage: 50 MG, 2 IN 1 DAY, ORAL
     Route: 048
  2. NEXIUM [Concomitant]

REACTIONS (1)
  - GASTRIC CANCER [None]
